FAERS Safety Report 5427680-6 (Version None)
Quarter: 2007Q3

REPORT INFORMATION
  Report Type: 
  Country: None (occurrence: None)
  Receive Date: 20070828
  Receipt Date: 20070815
  Transmission Date: 20080115
  Serious: Yes (Other)
  Sender: FDA-Public Use
  Company Number: DE-PURDUE-DEU_2007_0003583

PATIENT
  Age: 78 Year
  Sex: Female
  Weight: 59 kg

DRUGS (6)
  1. MORPHINE SULFATE [Suspect]
     Indication: PAIN
     Dosage: 20 MG, BID
     Route: 048
  2. BONIVA [Concomitant]
  3. CALCIMAGON [Concomitant]
  4. MAGNESIUM SULFATE [Concomitant]
  5. EYEPLEX [Concomitant]
  6. EUNOVA [Concomitant]

REACTIONS (4)
  - DRUG ADMINISTRATION ERROR [None]
  - FATIGUE [None]
  - LOSS OF CONSCIOUSNESS [None]
  - PRURITUS [None]
